FAERS Safety Report 9505397 (Version 1)
Quarter: 2013Q1

REPORT INFORMATION
  Report Type: Spontaneous
  Country: US (occurrence: None)
  Receive Date: 20130220
  Receipt Date: 20130220
  Transmission Date: 20140127
  Serious: No
  Sender: FDA-Public Use
  Company Number: 1000040224

PATIENT
  Age: 52 Year
  Sex: Female

DRUGS (7)
  1. VIIBYRD (VILAZODONE HYDROCHLORIDE) (10 MILLIGRAM, TABLETS) [Suspect]
     Indication: DEPRESSION
     Dosage: 10 MG (10 MG, 1 IN 1 D), ORAL
     Route: 048
     Dates: start: 201204, end: 2012
  2. VIIBYRD (VILAZODONE HYDROCHLORIDE) (10 MILLIGRAM, TABLETS) [Suspect]
     Indication: ANXIETY
     Dosage: 10 MG (10 MG, 1 IN 1 D), ORAL
     Route: 048
     Dates: start: 201204, end: 2012
  3. VIIBYRD (VILAZODONE HYIDROCHLORIDE) (40 MILLIGRAM, TABLET) [Suspect]
     Indication: DEPRESSION
     Dosage: 40 MG (40 MG, 1 IN 1 D), ORAL
     Route: 048
     Dates: start: 2012, end: 20120902
  4. VIIBYRD (VILAZODONE HYIDROCHLORIDE) (40 MILLIGRAM, TABLET) [Suspect]
     Indication: ANXIETY
     Dosage: 40 MG (40 MG, 1 IN 1 D), ORAL
     Route: 048
     Dates: start: 2012, end: 20120902
  5. VIIBRYD (VILAZODONE HYDROCHLORIDE) (40 MILLIGRAM, TABLETS) [Suspect]
     Dosage: 20 MG (20 MG, 1 IN 1 D), ORAL
     Route: 048
     Dates: start: 20120903, end: 20120920
  6. XANAX (ALPRAZOLAM) (ALPRAZOLAM) [Concomitant]
  7. AMBIEN (ZOLPIDEM TARTRATE) (ZOLPIDEM TARTRATE) [Concomitant]

REACTIONS (5)
  - Weight increased [None]
  - Alopecia [None]
  - Fatigue [None]
  - Nausea [None]
  - Musculoskeletal stiffness [None]
